FAERS Safety Report 8012036-2 (Version None)
Quarter: 2011Q4

REPORT INFORMATION
  Report Type: 
  Country: None (occurrence: None)
  Receive Date: 20111228
  Receipt Date: 20111220
  Transmission Date: 20120403
  Serious: Yes (Other)
  Sender: FDA-Public Use
  Company Number: JP-GLAXOSMITHKLINE-B0770896A

PATIENT
  Age: 41 Year
  Sex: Male

DRUGS (10)
  1. LAMICTAL [Suspect]
     Dosage: 200MG PER DAY
     Route: 048
     Dates: start: 20111201, end: 20111216
  2. LAMICTAL [Suspect]
     Dosage: 200MG PER DAY
     Route: 048
  3. UNKNOWN DRUG [Concomitant]
     Indication: DEPRESSION
     Route: 048
     Dates: start: 20111001
  4. ESTAZOLAM [Concomitant]
     Indication: INSOMNIA
     Route: 048
     Dates: start: 20111001
  5. ZYPREXA [Concomitant]
     Indication: BIPOLAR DISORDER
     Route: 048
     Dates: start: 20111001
  6. LAMICTAL [Suspect]
     Indication: BIPOLAR DISORDER
     Dosage: 25MG PER DAY
     Route: 048
     Dates: start: 20111012, end: 20111104
  7. LAMICTAL [Suspect]
     Dosage: 100MG PER DAY
     Route: 048
     Dates: start: 20111105, end: 20111130
  8. LAMICTAL [Suspect]
     Dosage: 400MG PER DAY
     Route: 048
     Dates: start: 20111217, end: 20111220
  9. DORAL [Concomitant]
     Indication: INSOMNIA
     Route: 048
     Dates: start: 20111001
  10. LENDORMIN [Concomitant]
     Indication: INSOMNIA
     Route: 048
     Dates: start: 20111001

REACTIONS (2)
  - DIPLOPIA [None]
  - HALLUCINATION, AUDITORY [None]
